FAERS Safety Report 19205729 (Version 2)
Quarter: 2021Q3

REPORT INFORMATION
  Report Type: Spontaneous
  Country: US (occurrence: US)
  Receive Date: 20210503
  Receipt Date: 20210908
  Transmission Date: 20211014
  Serious: No
  Sender: FDA-Public Use
  Company Number: US-FARMAPROD-202102-0271

PATIENT
  Sex: Female

DRUGS (3)
  1. VALACICLOVIR [Concomitant]
     Active Substance: VALACYCLOVIR HYDROCHLORIDE
  2. OXERVATE [Suspect]
     Active Substance: CENEGERMIN-BKBJ
     Indication: NEUROTROPHIC KERATOPATHY
     Route: 047
     Dates: start: 20201205, end: 20210224
  3. DOXYCYCLINE. [Concomitant]
     Active Substance: DOXYCYCLINE

REACTIONS (1)
  - Therapy partial responder [Unknown]
